FAERS Safety Report 20820630 (Version 6)
Quarter: 2022Q4

REPORT INFORMATION
  Report Type: Report from Study
  Country: US (occurrence: US)
  Receive Date: 20220512
  Receipt Date: 20221115
  Transmission Date: 20230113
  Serious: No
  Sender: FDA-Public Use
  Company Number: US-NOVARTISTESTPH-NVSC2022US108062

PATIENT
  Sex: Female

DRUGS (2)
  1. COSENTYX [Suspect]
     Active Substance: SECUKINUMAB
     Indication: Psoriatic arthropathy
     Dosage: 150 MG, QMO, SHE HAD BEEN ON COSENTYX FOR YEARS
     Route: 058
  2. COSENTYX [Suspect]
     Active Substance: SECUKINUMAB
     Dosage: 150 MG, QMO, RECENTLY RESTARTED TWO AND A HALF WEEKS AGO
     Route: 058

REACTIONS (2)
  - Injection site haemorrhage [Unknown]
  - Injection site bruising [Unknown]
